FAERS Safety Report 15820763 (Version 1)
Quarter: 2019Q1

REPORT INFORMATION
  Report Type: Spontaneous
  Country: US (occurrence: US)
  Receive Date: 20190114
  Receipt Date: 20190114
  Transmission Date: 20190417
  Serious: No
  Sender: FDA-Public Use
  Company Number: US-SA-2019SA008664

PATIENT
  Sex: Female
  Weight: 68 kg

DRUGS (12)
  1. PLAQUENIL [Suspect]
     Active Substance: HYDROXYCHLOROQUINE SULFATE
     Indication: ARTHRITIS
     Dosage: 200 MG CAPLET BY MOUTH TWICE A DAY
     Route: 048
     Dates: start: 2014
  2. TIZANIDINE HYDROCHLORIDE. [Suspect]
     Active Substance: TIZANIDINE HYDROCHLORIDE
     Indication: MUSCLE SPASMS
     Dosage: 4 MG, BID (1-2 TABLETS UP TO TWICE A DAY)
     Route: 048
  3. LEFLUNOMIDE. [Suspect]
     Active Substance: LEFLUNOMIDE
     Indication: ARTHRITIS
     Dosage: 20 MG, QD
     Route: 048
     Dates: start: 2015
  4. METHYLPREDNISOLONE. [Suspect]
     Active Substance: METHYLPREDNISOLONE
     Dosage: 4 MG, PRN
     Route: 048
  5. OMEPRAZOLE. [Suspect]
     Active Substance: OMEPRAZOLE
     Indication: GASTROOESOPHAGEAL REFLUX DISEASE
     Dosage: 40 MG, BID
     Route: 048
  6. RALOXIFENE HYDROCHLORIDE. [Suspect]
     Active Substance: RALOXIFENE HYDROCHLORIDE
     Indication: OSTEOPENIA
     Dosage: 60 MG, QD
     Route: 048
     Dates: start: 2015
  7. DIPHENHYDRAMINE. [Suspect]
     Active Substance: DIPHENHYDRAMINE
     Indication: HYPERSENSITIVITY
     Dosage: 25 MG IN MORNING AND BEFORE BED AND AS NEEDED
     Route: 048
  8. ATORVASTATIN [Suspect]
     Active Substance: ATORVASTATIN
     Indication: BLOOD CHOLESTEROL
     Dosage: 10 MG, QD
     Route: 048
  9. CALCIUM FOLINATE [Suspect]
     Active Substance: LEUCOVORIN CALCIUM
     Indication: VITAMIN SUPPLEMENTATION
     Dosage: 5 MG, BID
     Route: 048
     Dates: start: 2013
  10. SIMETHICONE (DIMETHICONE) [Suspect]
     Active Substance: DIMETHICONE
     Indication: FLATULENCE
     Dosage: UNK
     Dates: start: 2015
  11. XELJANZ XR [Suspect]
     Active Substance: TOFACITINIB CITRATE
     Indication: RHEUMATOID ARTHRITIS
     Dosage: 11 MG, QD
     Route: 048
     Dates: start: 20170620
  12. VITAMIN D [Suspect]
     Active Substance: CHOLECALCIFEROL
     Dosage: UNK
     Dates: start: 2015

REACTIONS (5)
  - Unevaluable event [Unknown]
  - Product dose omission [Unknown]
  - Vision blurred [Recovering/Resolving]
  - Blood calcium decreased [Unknown]
  - Diarrhoea [Unknown]

NARRATIVE: CASE EVENT DATE: 2017
